FAERS Safety Report 22049799 (Version 1)
Quarter: 2023Q1

REPORT INFORMATION
  Report Type: Spontaneous
  Country: AU (occurrence: AU)
  Receive Date: 20230301
  Receipt Date: 20230301
  Transmission Date: 20230418
  Serious: Yes (Other)
  Sender: FDA-Public Use
  Company Number: AU-ORGANON-O2302AUS002238

PATIENT
  Age: 79 Year
  Sex: Male

DRUGS (1)
  1. FOSAMAX PLUS D [Suspect]
     Active Substance: ALENDRONATE SODIUM\CHOLECALCIFEROL
     Dosage: UNK

REACTIONS (5)
  - Osteitis deformans [Unknown]
  - Back pain [Unknown]
  - Blood calcium abnormal [Unknown]
  - Bone density decreased [Unknown]
  - Overdose [Unknown]
